FAERS Safety Report 5953687-6 (Version None)
Quarter: 2008Q4

REPORT INFORMATION
  Report Type: 
  Country: None (occurrence: None)
  Receive Date: 20081114
  Receipt Date: 20081104
  Transmission Date: 20090506
  Serious: Yes (Other)
  Sender: FDA-Public Use
  Company Number: AT-WYE-G02509008

PATIENT
  Age: 53 Year
  Sex: Male

DRUGS (3)
  1. VENLAFAXINE HCL [Suspect]
     Indication: DEPRESSION
  2. VENLAFAXINE HCL [Suspect]
  3. VENLAFAXINE HCL [Suspect]

REACTIONS (7)
  - DISTURBANCE IN ATTENTION [None]
  - DRUG DEPENDENCE [None]
  - DRUG WITHDRAWAL SYNDROME [None]
  - MIGRAINE [None]
  - NERVOUSNESS [None]
  - PARAESTHESIA [None]
  - TENSION [None]
